FAERS Safety Report 9602332 (Version 1)
Quarter: 2013Q4

REPORT INFORMATION
  Report Type: Spontaneous
  Country: US (occurrence: US)
  Receive Date: 20131007
  Receipt Date: 20131007
  Transmission Date: 20140711
  Serious: No
  Sender: FDA-Public Use
  Company Number: US-GLAXOSMITHKLINE-A1032678A

PATIENT
  Sex: Male

DRUGS (3)
  1. BENLYSTA [Suspect]
     Indication: PRODUCT USED FOR UNKNOWN INDICATION
     Route: 042
  2. METHADONE [Suspect]
     Indication: PAIN
  3. PLAQUENIL [Concomitant]

REACTIONS (7)
  - Limb discomfort [Not Recovered/Not Resolved]
  - Infusion site pain [Not Recovered/Not Resolved]
  - Pain in extremity [Recovered/Resolved]
  - Muscular weakness [Unknown]
  - Drug interaction [Unknown]
  - Urine analysis abnormal [Unknown]
  - Activities of daily living impaired [Unknown]
